FAERS Safety Report 6915997-5 (Version None)
Quarter: 2010Q3

REPORT INFORMATION
  Report Type: 
  Country: None (occurrence: None)
  Receive Date: 20100809
  Receipt Date: 20100809
  Transmission Date: 20110219
  Serious: Yes (Hospitalization)
  Sender: FDA-Public Use
  Company Number: None

PATIENT
  Age: 71 Year
  Sex: Female
  Weight: 81 kg

DRUGS (16)
  1. DIGOXIN [Suspect]
     Indication: ATRIAL FIBRILLATION
     Dosage: 125 MCG DAILY PO ; PRIOR TO ADMISSION
     Route: 048
  2. ASCORBIC ACID [Concomitant]
  3. ASPIRIN [Concomitant]
  4. CLOPIDOGREL [Concomitant]
  5. CARVEDILOL [Concomitant]
  6. CINACALCET [Concomitant]
  7. CLONIDINE [Concomitant]
  8. DILTIAZEM CD [Concomitant]
  9. LEVETIRACETAM [Concomitant]
  10. LISINOPRIL [Concomitant]
  11. MULTI-VITAMIN [Concomitant]
  12. PHENYTOIN [Concomitant]
  13. RANITIDINE [Concomitant]
  14. SEVELAMER [Concomitant]
  15. SIMVASTATIN [Concomitant]
  16. WARFARIN [Concomitant]

REACTIONS (5)
  - ASTHENIA [None]
  - ATRIOVENTRICULAR BLOCK COMPLETE [None]
  - CARDIOACTIVE DRUG LEVEL INCREASED [None]
  - INTERNATIONAL NORMALISED RATIO INCREASED [None]
  - PNEUMONIA [None]
